FAERS Safety Report 17555776 (Version 1)
Quarter: 2020Q1

REPORT INFORMATION
  Report Type: Spontaneous
  Country: US (occurrence: US)
  Receive Date: 20200318
  Receipt Date: 20200318
  Transmission Date: 20200409
  Serious: Yes (Hospitalization)
  Sender: FDA-Public Use
  Company Number: None

PATIENT
  Age: 25 Year
  Sex: Male

DRUGS (15)
  1. STELARA [Suspect]
     Active Substance: USTEKINUMAB
     Indication: CROHN^S DISEASE
     Dates: start: 20191003
  2. POTASSIUM [Concomitant]
     Active Substance: POTASSIUM
  3. IRON [Concomitant]
     Active Substance: IRON
  4. LOPERARMIDE [Concomitant]
  5. XIFAXAN [Concomitant]
     Active Substance: RIFAXIMIN
  6. MECLIZINE [Concomitant]
     Active Substance: MECLIZINE HYDROCHLORIDE
  7. VANCOMYCIN [Concomitant]
     Active Substance: VANCOMYCIN
  8. BUDESONIDE. [Concomitant]
     Active Substance: BUDESONIDE
  9. CALC ACETATE [Concomitant]
     Active Substance: CALCIUM ACETATE
  10. PREDNISONE. [Concomitant]
     Active Substance: PREDNISONE
  11. URSODIOL. [Concomitant]
     Active Substance: URSODIOL
  12. ACID REDUCER [Concomitant]
  13. CRUSH VIT [Concomitant]
  14. MULTIVITAMIN [Concomitant]
     Active Substance: VITAMINS
  15. PREVALITE [Concomitant]
     Active Substance: CHOLESTYRAMINE

REACTIONS (1)
  - Pancreatitis [None]

NARRATIVE: CASE EVENT DATE: 20200306
